FAERS Safety Report 7043811-9 (Version None)
Quarter: 2010Q4

REPORT INFORMATION
  Report Type: 
  Country: None (occurrence: None)
  Receive Date: 20101012
  Receipt Date: 20101012
  Transmission Date: 20110411
  Serious: Yes (Other)
  Sender: FDA-Public Use
  Company Number: None

PATIENT
  Age: 48 Year
  Sex: Female
  Weight: 177.81 kg

DRUGS (5)
  1. ALLI [Suspect]
     Indication: OBESITY
     Dosage: 1 TABLET WITH MEALS PO
     Route: 048
     Dates: start: 20100501, end: 20100530
  2. ALLI [Suspect]
     Indication: OBESITY
     Dosage: 1 TABLET WITH MEALS PO
     Route: 048
     Dates: start: 20100908, end: 20100910
  3. KLONAZEPAN [Concomitant]
  4. ALAVERT [Concomitant]
  5. FLONASE [Concomitant]

REACTIONS (2)
  - ABDOMINAL PAIN UPPER [None]
  - FAECES PALE [None]
